FAERS Safety Report 7137223-7 (Version None)
Quarter: 2010Q4

REPORT INFORMATION
  Report Type: 
  Country: None (occurrence: None)
  Receive Date: 20101119
  Receipt Date: 20101110
  Transmission Date: 20110411
  Serious: Yes (Hospitalization, Other)
  Sender: FDA-Public Use
  Company Number: 2010US004642

PATIENT
  Age: 48 Year
  Sex: Male
  Weight: 63 kg

DRUGS (15)
  1. PROGRAF [Suspect]
     Indication: RENAL TRANSPLANT
     Dosage: 1 MG, BID, ORAL
     Route: 048
     Dates: start: 19991224
  2. MEDROL [Concomitant]
  3. MULTIVITAMIN [Concomitant]
  4. ASPIRIN [Concomitant]
  5. PLAVIX [Concomitant]
  6. ACTONEL [Concomitant]
  7. FOLBEE PLUS (ASCORBIC ACID, VITAMIN-B-KOMPLEX STANDARD) [Concomitant]
  8. FEXOFENADINE HYDROCHLORIDE [Concomitant]
  9. AMLODIPINE BESYLATE [Concomitant]
  10. METOPROLOL SUCCINATE [Concomitant]
  11. LOTRIMIN [Concomitant]
  12. CALCIUM +D (CALCIUM, ERGOCALCIFEROL) [Concomitant]
  13. NIACIN [Concomitant]
  14. ASCORBIC ACID [Concomitant]
  15. VITAMIN B6 [Concomitant]

REACTIONS (3)
  - PANCREAS TRANSPLANT [None]
  - PANCREAS TRANSPLANT REJECTION [None]
  - TUBERCULOSIS [None]
